FAERS Safety Report 5713661-1 (Version None)
Quarter: 2008Q2

REPORT INFORMATION
  Report Type: 
  Country: None (occurrence: None)
  Receive Date: 20080418
  Receipt Date: 20080403
  Transmission Date: 20081010
  Serious: Yes (Disabling)
  Sender: FDA-Public Use
  Company Number: AZACH200800097

PATIENT
  Sex: Male

DRUGS (2)
  1. VIDAZA [Suspect]
     Indication: MYELODYSPLASTIC SYNDROME
     Dosage: 100 MG/M2, DAILY X 5 DAYS), SUBCUTANEOUS
     Route: 058
     Dates: start: 20080206, end: 20080210
  2. VITAMIN B12 [Concomitant]

REACTIONS (2)
  - DERMATITIS [None]
  - SKIN ULCER [None]
